FAERS Safety Report 5644010-5 (Version None)
Quarter: 2008Q1

REPORT INFORMATION
  Report Type: 
  Country: None (occurrence: None)
  Receive Date: 20080131
  Receipt Date: 20071123
  Transmission Date: 20080703
  Serious: Yes (Hospitalization)
  Sender: FDA-Public Use
  Company Number: 163-21880-07111362

PATIENT
  Age: 66 Year
  Sex: Female

DRUGS (10)
  1. REVLIMID [Suspect]
     Indication: 5Q-SYNDROME
     Dosage: 10 MG, 1 IN 1 D
     Dates: start: 20070821, end: 20070827
  2. PROCRIT [Suspect]
     Indication: DRUG USE FOR UNKNOWN INDICATION
  3. HYDROMORPHONE HCL [Concomitant]
  4. FENTANYL [Concomitant]
  5. HYOSCYAMINE (HYOSCYAMINE) [Concomitant]
  6. NTG (GLYCERYL TRINITRATE) [Concomitant]
  7. BACLOFEN [Concomitant]
  8. CITALOPRAM HYDROBROMIDE [Concomitant]
  9. MG OXIDE (MAGNESIUM OXIDE) [Concomitant]
  10. THYROID TAB [Concomitant]

REACTIONS (3)
  - CHEST PAIN [None]
  - DYSPNOEA [None]
  - PULMONARY EMBOLISM [None]
